FAERS Safety Report 13315963 (Version 1)
Quarter: 2017Q1

REPORT INFORMATION
  Report Type: Spontaneous
  Country: US (occurrence: US)
  Receive Date: 20170308
  Receipt Date: 20170308
  Transmission Date: 20170428
  Serious: No
  Sender: FDA-Public Use
  Company Number: US-ASTRAZENECA-2017SE22193

PATIENT

DRUGS (2)
  1. MIRAPEX [Interacting]
     Active Substance: PRAMIPEXOLE DIHYDROCHLORIDE
     Route: 065
  2. SEROQUEL [Suspect]
     Active Substance: QUETIAPINE FUMARATE
     Route: 048

REACTIONS (4)
  - Drug effect decreased [Unknown]
  - Tremor [Unknown]
  - Psychotic disorder [Unknown]
  - Drug interaction [Unknown]
